FAERS Safety Report 10155516 (Version 1)
Quarter: 2014Q2

REPORT INFORMATION
  Report Type: Spontaneous
  Country: US (occurrence: US)
  Receive Date: 20140506
  Receipt Date: 20140506
  Transmission Date: 20141212
  Serious: No
  Sender: FDA-Public Use
  Company Number: US-PFIZER INC-2014123254

PATIENT
  Age: 56 Year
  Sex: Female
  Weight: 67.12 kg

DRUGS (3)
  1. LYRICA [Suspect]
     Indication: NERVE INJURY
     Dosage: 3X/DAY (150MG IN MORNING, 150MG IN AFTERNOON AND 300MG IN EVENING)
  2. MOBIC [Concomitant]
     Indication: ARTHRITIS
     Dosage: 7.5 MG, DAILY
  3. HYDROCODONE [Concomitant]
     Dosage: TWO 10/325 MG TABLETS, 2X/DAY

REACTIONS (1)
  - Plantar fasciitis [Not Recovered/Not Resolved]
